FAERS Safety Report 8024853-3 (Version None)
Quarter: 2012Q1

REPORT INFORMATION
  Report Type: 
  Country: None (occurrence: None)
  Receive Date: 20120105
  Receipt Date: 20111227
  Transmission Date: 20120608
  Serious: Yes (Life-Threatening, Hospitalization)
  Sender: FDA-Public Use
  Company Number: US-JNJFOC-20111001515

PATIENT
  Sex: Female
  Weight: 65.77 kg

DRUGS (10)
  1. ELMIRON [Concomitant]
     Indication: PRODUCT USED FOR UNKNOWN INDICATION
  2. IMODIUM [Concomitant]
     Indication: PRODUCT USED FOR UNKNOWN INDICATION
  3. CLONAZEPAM [Concomitant]
     Indication: PRODUCT USED FOR UNKNOWN INDICATION
  4. REMICADE [Suspect]
     Indication: CROHN'S DISEASE
     Route: 042
     Dates: start: 20091209, end: 20101214
  5. HUMIRA [Suspect]
     Indication: PRODUCT USED FOR UNKNOWN INDICATION
  6. PROZAC [Concomitant]
     Indication: PRODUCT USED FOR UNKNOWN INDICATION
  7. VITAMIN D [Concomitant]
     Indication: PRODUCT USED FOR UNKNOWN INDICATION
  8. LOESTRIN 1.5/30 [Concomitant]
     Indication: PRODUCT USED FOR UNKNOWN INDICATION
     Dosage: 1.5/30 MG/MCG
  9. ALLERGY MEDICATION [Concomitant]
     Indication: PRODUCT USED FOR UNKNOWN INDICATION
     Route: 050
  10. MESALAMINE [Concomitant]
     Indication: PRODUCT USED FOR UNKNOWN INDICATION

REACTIONS (1)
  - COLON CANCER [None]
